FAERS Safety Report 8807181 (Version 5)
Quarter: 2013Q2

REPORT INFORMATION
  Report Type: Spontaneous
  Country: US (occurrence: US)
  Receive Date: 20120925
  Receipt Date: 20130416
  Transmission Date: 20140414
  Serious: No
  Sender: FDA-Public Use
  Company Number: US-ASTRAZENECA-2012SE72038

PATIENT
  Age: 49 Year
  Sex: Female

DRUGS (6)
  1. CRESTOR [Suspect]
     Route: 048
  2. AMOXICLAV [Concomitant]
     Dosage: 875/125
  3. SANDOZ [Concomitant]
  4. CORICEDIN HBP [Concomitant]
     Indication: COUGH
  5. CHERATUSSIN AC [Concomitant]
     Indication: COUGH
  6. SHOT IN HIP [Concomitant]

REACTIONS (8)
  - Upper respiratory tract infection [Unknown]
  - Cough [Unknown]
  - Malaise [Unknown]
  - Oropharyngeal pain [Unknown]
  - Throat irritation [Unknown]
  - Hiccups [Unknown]
  - Muscle spasms [Unknown]
  - Drug dose omission [Unknown]
